FAERS Safety Report 22623410 (Version 9)
Quarter: 2025Q3

REPORT INFORMATION
  Report Type: Report from Study
  Country: US (occurrence: US)
  Receive Date: 20230621
  Receipt Date: 20250813
  Transmission Date: 20251021
  Serious: Yes (Hospitalization, Other)
  Sender: TAKEDA
  Company Number: US-TAKEDA-2023TUS037171

PATIENT
  Age: 73 Year
  Sex: Female
  Weight: 78 kg

DRUGS (27)
  1. TEDUGLUTIDE [Suspect]
     Active Substance: TEDUGLUTIDE
     Indication: Short-bowel syndrome
     Dosage: 3.659 MILLIGRAM, QOD
     Dates: end: 202212
  2. TEDUGLUTIDE [Suspect]
     Active Substance: TEDUGLUTIDE
     Dosage: 3.659 MILLIGRAM, QOD
  3. TEDUGLUTIDE [Suspect]
     Active Substance: TEDUGLUTIDE
     Dosage: 3.659 MILLIGRAM, QOD
  4. TEDUGLUTIDE [Suspect]
     Active Substance: TEDUGLUTIDE
     Dosage: 3.659 MILLIGRAM, QOD
  5. TEDUGLUTIDE [Suspect]
     Active Substance: TEDUGLUTIDE
  6. TEDUGLUTIDE [Suspect]
     Active Substance: TEDUGLUTIDE
     Dosage: 3.659 MILLIGRAM, QOD
  7. TEDUGLUTIDE [Suspect]
     Active Substance: TEDUGLUTIDE
     Dosage: 3.659 MILLIGRAM, QOD
  8. TRAZODONE HCL [Concomitant]
     Active Substance: TRAZODONE HYDROCHLORIDE
  9. IRON [Concomitant]
     Active Substance: IRON
  10. VALACYCLOVIR [Concomitant]
     Active Substance: VALACYCLOVIR HYDROCHLORIDE
  11. ZINC [Concomitant]
     Active Substance: ZINC
  12. ACETAMINOPHEN [Concomitant]
     Active Substance: ACETAMINOPHEN
  13. AZELASTINE HYDROCHLORIDE [Concomitant]
     Active Substance: AZELASTINE HYDROCHLORIDE
  14. LISINOPRIL [Concomitant]
     Active Substance: LISINOPRIL
  15. METRONIDAZOLE [Concomitant]
     Active Substance: METRONIDAZOLE
  16. PROLIA [Concomitant]
     Active Substance: DENOSUMAB
  17. HYDROCORTISONE [Concomitant]
     Active Substance: HYDROCORTISONE
  18. LOPERAMIDE [Concomitant]
     Active Substance: LOPERAMIDE
  19. IPRATROPIUM BROMIDE AND ALBUTEROL SULFATE [Concomitant]
     Active Substance: ALBUTEROL SULFATE\IPRATROPIUM BROMIDE
  20. ALBUTEROL SULFATE [Concomitant]
     Active Substance: ALBUTEROL SULFATE
  21. CHOLESTYRAMINE [Concomitant]
     Active Substance: CHOLESTYRAMINE
  22. ZESTRIL [Concomitant]
     Active Substance: LISINOPRIL
  23. MAGNESIUM [Concomitant]
     Active Substance: MAGNESIUM
  24. SERTRALINE HYDROCHLORIDE [Concomitant]
     Active Substance: SERTRALINE HYDROCHLORIDE
  25. VITAMIN D2 [Concomitant]
     Active Substance: ERGOCALCIFEROL
  26. Mcg [Concomitant]
  27. GABAPENTIN [Concomitant]
     Active Substance: GABAPENTIN

REACTIONS (12)
  - Hernia [Recovered/Resolved]
  - COVID-19 [Unknown]
  - Rhinorrhoea [Not Recovered/Not Resolved]
  - Insurance issue [Unknown]
  - Herpes zoster [Not Recovered/Not Resolved]
  - Drug ineffective [Not Recovered/Not Resolved]
  - Product use issue [Unknown]
  - Multiple allergies [Not Recovered/Not Resolved]
  - Needle issue [Unknown]
  - Sciatica [Unknown]
  - Product dose omission issue [Unknown]
  - Product availability issue [Unknown]

NARRATIVE: CASE EVENT DATE: 20221201
